FAERS Safety Report 4527027-3 (Version None)
Quarter: 2004Q4

REPORT INFORMATION
  Report Type: 
  Country: None (occurrence: None)
  Receive Date: 20041201
  Receipt Date: 20041012
  Transmission Date: 20050328
  Serious: No
  Sender: FDA-Public Use
  Company Number: MPS1-10290

PATIENT
  Age: 17 Month
  Sex: Male
  Weight: 12 kg

DRUGS (1)
  1. ALDURAZYME [Suspect]
     Dosage: 1200 UNITS IV
     Route: 042
     Dates: start: 20040715

REACTIONS (2)
  - PALLOR [None]
  - VOMITING [None]
